FAERS Safety Report 21742537 (Version 1)
Quarter: 2022Q4

REPORT INFORMATION
  Report Type: Report from Study
  Country: US (occurrence: US)
  Receive Date: 20221216
  Receipt Date: 20221216
  Transmission Date: 20230113
  Serious: No
  Sender: FDA-Public Use
  Company Number: US-ABBVIE-4198105

PATIENT

DRUGS (1)
  1. HUMIRA [Suspect]
     Active Substance: ADALIMUMAB
     Indication: Psoriasis
     Dosage: CITRATE FREE
     Route: 058

REACTIONS (5)
  - Infection [Recovering/Resolving]
  - Cough [Unknown]
  - Sputum discoloured [Unknown]
  - Psoriasis [Unknown]
  - Pyrexia [Not Recovered/Not Resolved]
